FAERS Safety Report 4520313-2 (Version None)
Quarter: 2004Q4

REPORT INFORMATION
  Report Type: 
  Country: None (occurrence: None)
  Receive Date: 20041203
  Receipt Date: 20041117
  Transmission Date: 20050328
  Serious: Yes (Disabling)
  Sender: FDA-Public Use
  Company Number: DSA_60441_2004

PATIENT
  Age: 72 Year
  Sex: Male

DRUGS (7)
  1. MYSOLINE [Suspect]
     Indication: TREMOR
     Dosage: 1000 MG QDAY PO
     Route: 048
     Dates: end: 20040101
  2. INDERAL [Concomitant]
  3. ASASANTIN [Concomitant]
  4. MONOKET [Concomitant]
  5. PAROXETINE [Concomitant]
  6. XALATAN [Concomitant]
  7. SIMVASTATIN [Concomitant]

REACTIONS (3)
  - COGNITIVE DISORDER [None]
  - DIFFICULTY IN WALKING [None]
  - HEADACHE [None]
